FAERS Safety Report 19934367 (Version 2)
Quarter: 2023Q2

REPORT INFORMATION
  Report Type: Report from Study
  Country: US (occurrence: US)
  Receive Date: 20211008
  Receipt Date: 20230612
  Transmission Date: 20230722
  Serious: No
  Sender: FDA-Public Use
  Company Number: US-INCYTE CORPORATION-2021IN007871

PATIENT

DRUGS (1)
  1. JAKAFI [Suspect]
     Active Substance: RUXOLITINIB
     Indication: Acute myeloid leukaemia
     Dosage: 5 MILLIGRAM, BID
     Route: 048
     Dates: start: 20210826

REACTIONS (3)
  - Product container seal issue [Unknown]
  - Product packaging quantity issue [Unknown]
  - Off label use [Unknown]

NARRATIVE: CASE EVENT DATE: 20210826
